FAERS Safety Report 21626873 (Version 1)
Quarter: 2022Q4

REPORT INFORMATION
  Report Type: Spontaneous
  Country: US (occurrence: None)
  Receive Date: 20221122
  Receipt Date: 20221122
  Transmission Date: 20230112
  Serious: No
  Sender: FDA-Public Use
  Company Number: US-ROCHE-3189599

PATIENT
  Sex: Female
  Weight: 73 kg

DRUGS (5)
  1. EVRYSDI [Suspect]
     Active Substance: RISDIPLAM
     Indication: Spinal muscular atrophy
     Dosage: 0.75 MG/ML  80 ML (IN 100ML BOTTLE) 5MG PER ORAL DAILY AFTER MEAL AT THE SAME TIME EACH DAY.
     Route: 048
     Dates: start: 20210512
  2. EVRYSDI [Suspect]
     Active Substance: RISDIPLAM
  3. EVRYSDI [Suspect]
     Active Substance: RISDIPLAM
  4. EVRYSDI [Suspect]
     Active Substance: RISDIPLAM
  5. EVRYSDI [Suspect]
     Active Substance: RISDIPLAM

REACTIONS (1)
  - Fall [Unknown]
